FAERS Safety Report 26056039 (Version 1)
Quarter: 2025Q4

REPORT INFORMATION
  Report Type: Spontaneous
  Country: CN (occurrence: CN)
  Receive Date: 20251118
  Receipt Date: 20251118
  Transmission Date: 20260118
  Serious: Yes (Other)
  Sender: BAXTER
  Company Number: None

PATIENT
  Age: 42 Year
  Sex: Female
  Weight: 55 kg

DRUGS (4)
  1. CYCLOPHOSPHAMIDE [Suspect]
     Active Substance: CYCLOPHOSPHAMIDE
     Indication: Breast cancer female
     Dosage: 0.9 G, EVERY 3 WK (ONCE EVERY 21 DAYS)
     Route: 041
     Dates: start: 20250929, end: 20250929
  2. DOCETAXEL [Suspect]
     Active Substance: DOCETAXEL
     Indication: Breast cancer female
     Dosage: 120 MG, EVERY 3 WK
     Route: 041
     Dates: start: 20250929, end: 20250929
  3. SODIUM CHLORIDE [Suspect]
     Active Substance: SODIUM CHLORIDE
     Indication: Medication dilution
     Dosage: 250 ML, EVERY 3 WK WITH DOCETAXEL
     Route: 041
     Dates: start: 20250929, end: 20250929
  4. SODIUM CHLORIDE [Suspect]
     Active Substance: SODIUM CHLORIDE
     Dosage: 100 ML, EVERY 3 WK WITH CYCLOPHOSPHAMIDE
     Route: 041
     Dates: start: 20250929, end: 20250929

REACTIONS (3)
  - Rash rubelliform [Recovering/Resolving]
  - Pruritus [Recovering/Resolving]
  - Urticaria [Not Recovered/Not Resolved]

NARRATIVE: CASE EVENT DATE: 20251015
